FAERS Safety Report 23674608 (Version 2)
Quarter: 2024Q2

REPORT INFORMATION
  Report Type: Spontaneous
  Country: US (occurrence: US)
  Receive Date: 20240326
  Receipt Date: 20240409
  Transmission Date: 20240716
  Serious: No
  Sender: FDA-Public Use
  Company Number: US-MYLANLABS-2024M1026360

PATIENT
  Sex: Male
  Weight: 90.26 kg

DRUGS (1)
  1. TYRVAYA [Suspect]
     Active Substance: VARENICLINE TARTRATE
     Indication: Dry eye
     Dosage: UNK, BID (ONE SPRAY TO EACH NOSTRIL TWICE DAILY)
     Route: 045

REACTIONS (3)
  - Throat irritation [Unknown]
  - Treatment noncompliance [Unknown]
  - Drug ineffective [Unknown]
